FAERS Safety Report 7549621-8 (Version None)
Quarter: 2011Q2

REPORT INFORMATION
  Report Type: 
  Country: None (occurrence: None)
  Receive Date: 20110615
  Receipt Date: 20110531
  Transmission Date: 20111010
  Serious: Yes (Other)
  Sender: FDA-Public Use
  Company Number: US-JNJFOC-20110600962

PATIENT
  Age: 70 Year
  Sex: Female

DRUGS (4)
  1. METRONIDAZOLE [Interacting]
     Indication: RHEUMATOID ARTHRITIS
     Route: 048
     Dates: start: 20110201, end: 20110301
  2. REMICADE [Suspect]
     Indication: RHEUMATOID ARTHRITIS
     Dosage: 3 VIALS IV INFUSION OVER 2 HOURS
     Route: 042
  3. METRONIDAZOLE [Interacting]
     Indication: VULVOVAGINAL MYCOTIC INFECTION
     Route: 048
     Dates: start: 20110201, end: 20110301
  4. REMICADE [Suspect]
     Dosage: 3 VIALS IV INFUSION OVER 2 HOURS
     Route: 042
     Dates: start: 20110222

REACTIONS (8)
  - COORDINATION ABNORMAL [None]
  - INFLUENZA LIKE ILLNESS [None]
  - PYREXIA [None]
  - GAIT DISTURBANCE [None]
  - CHILLS [None]
  - VULVOVAGINAL MYCOTIC INFECTION [None]
  - DRUG INTERACTION [None]
  - MALAISE [None]
